FAERS Safety Report 10155652 (Version 1)
Quarter: 2014Q2

REPORT INFORMATION
  Report Type: Spontaneous
  Country: US (occurrence: US)
  Receive Date: 20140506
  Receipt Date: 20140506
  Transmission Date: 20141212
  Serious: Yes (Other)
  Sender: FDA-Public Use
  Company Number: US-GLAXOSMITHKLINE-A1071374A

PATIENT
  Age: 74 Year
  Sex: Female

DRUGS (15)
  1. ADVAIR [Suspect]
     Indication: ASTHMA
     Dosage: 1PUFF TWICE PER DAY
     Route: 055
  2. ALBUTEROL/IPRATROPIUM [Concomitant]
  3. COMBIVENT [Concomitant]
  4. SINGULAIR [Concomitant]
  5. THEOPHYLLINE [Concomitant]
  6. LASIX [Concomitant]
  7. SPIRONOLACTONE [Concomitant]
  8. LISINOPRIL [Concomitant]
  9. METOPROLOL [Concomitant]
  10. VERAPAMIL [Concomitant]
  11. VITAMIN D [Concomitant]
  12. FAMOTIDINE [Concomitant]
  13. ZYRTEC [Concomitant]
  14. ESTROGEN [Concomitant]
  15. ALLOPURINOL [Concomitant]

REACTIONS (4)
  - Bronchopneumonia [Recovering/Resolving]
  - Nasopharyngitis [Recovering/Resolving]
  - Sinusitis [Recovering/Resolving]
  - Malaise [Recovering/Resolving]
